FAERS Safety Report 9646110 (Version 2)
Quarter: 2013Q4

REPORT INFORMATION
  Report Type: Report from Study
  Country: US (occurrence: US)
  Receive Date: 20131025
  Receipt Date: 20131025
  Transmission Date: 20140711
  Serious: Yes (Other)
  Sender: FDA-Public Use
  Company Number: US-ABBVIE-13P-163-1158303-00

PATIENT
  Sex: Male

DRUGS (10)
  1. HUMIRA [Suspect]
     Indication: PSORIASIS
     Dates: start: 20080130, end: 2011
  2. HUMIRA [Suspect]
     Dates: start: 20131015
  3. SYNTHROID [Concomitant]
     Indication: HYPOTHYROIDISM
  4. PREVASTATIN [Concomitant]
     Indication: HYPERLIPIDAEMIA
  5. ISOSORBIDE [Concomitant]
     Indication: CARDIAC DISORDER
  6. ANDROGEL [Concomitant]
     Indication: PRODUCT USED FOR UNKNOWN INDICATION
  7. METOPROLOL WITH HCTZ [Concomitant]
     Indication: CARDIAC DISORDER
  8. METFORMIN [Concomitant]
     Indication: DIABETES MELLITUS
  9. RANEXA [Concomitant]
     Indication: PRODUCT USED FOR UNKNOWN INDICATION
  10. LISINOPRIL [Concomitant]
     Indication: CARDIAC DISORDER

REACTIONS (3)
  - Coronary arterial stent insertion [Not Recovered/Not Resolved]
  - Psoriasis [Unknown]
  - Arterial occlusive disease [Unknown]
